FAERS Safety Report 13676216 (Version 1)
Quarter: 2017Q2

REPORT INFORMATION
  Report Type: Spontaneous
  Country: US (occurrence: US)
  Receive Date: 20170622
  Receipt Date: 20170622
  Transmission Date: 20170830
  Serious: No
  Sender: FDA-Public Use
  Company Number: US-AUROBINDO-AUR-APU-2016-13933

PATIENT
  Age: 70 Year
  Sex: Female

DRUGS (3)
  1. CIPROFLOXACIN TABLETS USP 250 MG [Suspect]
     Active Substance: CIPROFLOXACIN
     Indication: URINARY TRACT INFECTION
     Dosage: 250 MG, TWO TIMES A DAY
     Route: 065
     Dates: start: 20161102, end: 20161103
  2. TAMOXIFEN [Concomitant]
     Active Substance: TAMOXIFEN
     Indication: URINARY TRACT INFECTION
     Dosage: 20 MG, TWO TIMES A DAY
  3. BYSTOLIC [Concomitant]
     Active Substance: NEBIVOLOL HYDROCHLORIDE
     Indication: URINARY TRACT INFECTION
     Dosage: 5 MG, TWO TIMES A DAY

REACTIONS (1)
  - Eyelid oedema [Recovering/Resolving]

NARRATIVE: CASE EVENT DATE: 20161102
